FAERS Safety Report 7818214-7 (Version None)
Quarter: 2011Q4

REPORT INFORMATION
  Report Type: 
  Country: None (occurrence: None)
  Receive Date: 20111017
  Receipt Date: 20111011
  Transmission Date: 20120403
  Serious: Yes (Death, Other)
  Sender: FDA-Public Use
  Company Number: JP-PFIZER INC-2011219026

PATIENT
  Age: 72 Year
  Sex: Male

DRUGS (5)
  1. TRAMADOL HYDROCHLORIDE [Concomitant]
     Indication: RENAL CELL CARCINOMA
     Dosage: UNK
  2. REBAMIPIDE [Concomitant]
     Indication: PROPHYLAXIS
     Dosage: UNK
     Route: 048
     Dates: end: 20110620
  3. TEMSIROLIMUS [Suspect]
     Indication: RENAL CELL CARCINOMA
     Dosage: UNK
     Route: 041
  4. SENNOSIDE A+B [Concomitant]
     Indication: RENAL CELL CARCINOMA
     Dosage: 24 MG, 1X/DAY
     Route: 048
     Dates: end: 20110613
  5. NAPROXEN [Concomitant]
     Indication: RENAL CELL CARCINOMA
     Dosage: UNK
     Route: 048
     Dates: end: 20110629

REACTIONS (2)
  - INTERSTITIAL LUNG DISEASE [None]
  - DEATH [None]
